FAERS Safety Report 20988699 (Version 1)
Quarter: 2022Q2

REPORT INFORMATION
  Report Type: Spontaneous
  Country: US (occurrence: US)
  Receive Date: 20220621
  Receipt Date: 20220621
  Transmission Date: 20220720
  Serious: Yes (Hospitalization, Other)
  Sender: FDA-Public Use
  Company Number: US-PFIZER INC-202200850142

PATIENT
  Age: 84 Year
  Sex: Male

DRUGS (1)
  1. BRAFTOVI [Suspect]
     Active Substance: ENCORAFENIB
     Dosage: 450 MG, DAILY (6 CAPSULES ONCE DAILY, BY MOUTH)
     Route: 048
     Dates: start: 202205

REACTIONS (3)
  - Haemoglobin decreased [Unknown]
  - Thrombosis [Unknown]
  - Swelling [Unknown]
